FAERS Safety Report 23398533 (Version 1)
Quarter: 2024Q1

REPORT INFORMATION
  Report Type: Spontaneous
  Country: US (occurrence: US)
  Receive Date: 20240112
  Receipt Date: 20240112
  Transmission Date: 20240410
  Serious: No
  Sender: FDA-Public Use
  Company Number: US-PERRIGO-23US013864

PATIENT
  Age: 68 Year
  Sex: Male
  Weight: 122.45 kg

DRUGS (6)
  1. IBUPROFEN [Suspect]
     Active Substance: IBUPROFEN
     Indication: Pain
     Dosage: 400 MG, BID, PRN
     Route: 048
     Dates: end: 202306
  2. IBUPROFEN [Suspect]
     Active Substance: IBUPROFEN
     Dosage: 400 MG, BID
     Route: 048
     Dates: start: 202306, end: 202308
  3. IBUPROFEN [Suspect]
     Active Substance: IBUPROFEN
     Dosage: 400 MG, QD
     Route: 048
     Dates: start: 20231107, end: 20231108
  4. IBUPROFEN [Suspect]
     Active Substance: IBUPROFEN
     Dosage: 400 MG, BID
     Route: 048
     Dates: start: 20231130, end: 20231201
  5. VICODIN [Concomitant]
     Active Substance: ACETAMINOPHEN\HYDROCODONE BITARTRATE
     Indication: Pain
     Dosage: UNK, PRN
     Route: 065
  6. OMEPRAZOLE [Concomitant]
     Active Substance: OMEPRAZOLE
     Indication: Gastrooesophageal reflux disease
     Dosage: UNK
     Route: 065

REACTIONS (2)
  - Dyspepsia [Recovered/Resolved]
  - Incorrect product administration duration [Recovered/Resolved]

NARRATIVE: CASE EVENT DATE: 20230601
